FAERS Safety Report 9994296 (Version 1)
Quarter: 2014Q1

REPORT INFORMATION
  Report Type: Spontaneous
  Country: US (occurrence: US)
  Receive Date: 20140310
  Receipt Date: 20140310
  Transmission Date: 20141002
  Serious: No
  Sender: FDA-Public Use
  Company Number: US-BAXTER-2014BAX010696

PATIENT
  Sex: Male
  Weight: 127 kg

DRUGS (4)
  1. DIANEAL LOW CALCIUM [Suspect]
     Indication: CONGENITAL CYSTIC KIDNEY DISEASE
     Route: 033
     Dates: start: 2013
  2. DIANEAL LOW CALCIUM [Suspect]
     Route: 033
     Dates: start: 2013
  3. DIANEAL LOW CALCIUM [Suspect]
     Indication: CONGENITAL CYSTIC KIDNEY DISEASE
     Route: 033
     Dates: start: 2013
  4. DIANEAL LOW CALCIUM [Suspect]
     Route: 033
     Dates: start: 2013

REACTIONS (1)
  - Fluid retention [Recovering/Resolving]
